FAERS Safety Report 7299993-7 (Version None)
Quarter: 2011Q1

REPORT INFORMATION
  Report Type: 
  Country: None (occurrence: None)
  Receive Date: 20110217
  Receipt Date: 20110203
  Transmission Date: 20110831
  Serious: Yes (Death, Other)
  Sender: FDA-Public Use
  Company Number: JP-CELGENEUS-087-21880-11020518

PATIENT
  Sex: Female

DRUGS (6)
  1. LENADEX [Suspect]
     Indication: MULTIPLE MYELOMA
     Route: 048
     Dates: start: 20110121, end: 20110121
  2. FLUCONAZOLE [Concomitant]
     Indication: PROPHYLAXIS
     Route: 048
     Dates: start: 20110121, end: 20110128
  3. PARIET [Concomitant]
     Indication: PROPHYLAXIS
     Route: 048
     Dates: start: 20110121, end: 20110128
  4. REVLIMID [Suspect]
     Indication: MULTIPLE MYELOMA
     Route: 048
     Dates: start: 20110121, end: 20110126
  5. DAIPHEN [Concomitant]
     Indication: PROPHYLAXIS
     Route: 048
     Dates: start: 20110121, end: 20110128
  6. BUFFERIN [Concomitant]
     Indication: PROPHYLAXIS
     Route: 048
     Dates: start: 20110121, end: 20110128

REACTIONS (4)
  - NEUTROPENIA [None]
  - BRONCHOPULMONARY ASPERGILLOSIS [None]
  - DIARRHOEA [None]
  - THROMBOCYTOPENIA [None]
